FAERS Safety Report 4917881-5 (Version None)
Quarter: 2006Q1

REPORT INFORMATION
  Report Type: 
  Country: None (occurrence: None)
  Receive Date: 20060215
  Receipt Date: 20060202
  Transmission Date: 20060701
  Serious: Yes (Hospitalization)
  Sender: FDA-Public Use
  Company Number: 2006007868

PATIENT
  Age: 71 Year
  Sex: Female
  Weight: 45 kg

DRUGS (6)
  1. VFEND [Suspect]
     Indication: SINUSITIS ASPERGILLUS
     Dosage: 150 MG (75 MG, 2 IN 1 D), INTRAVENOUS
     Route: 042
     Dates: start: 20051216, end: 20051222
  2. VFEND [Suspect]
     Indication: SINUSITIS ASPERGILLUS
     Dosage: 600 MG (300 MG, 2 IN 1 D), ORAL
     Route: 048
     Dates: start: 20051223
  3. LOXONIN (LOXOPROFEN SODIUM) [Concomitant]
  4. MUCOSAT (REBAMIPIDE) [Concomitant]
  5. INSULIN [Concomitant]
  6. MUCOSTA (REBAMIPIDE) [Concomitant]

REACTIONS (9)
  - ASPARTATE AMINOTRANSFERASE INCREASED [None]
  - ASTHENIA [None]
  - BACK PAIN [None]
  - BLOOD CREATINE PHOSPHOKINASE INCREASED [None]
  - BLOOD CREATININE INCREASED [None]
  - BLOOD LACTATE DEHYDROGENASE INCREASED [None]
  - DIFFICULTY IN WALKING [None]
  - MYOSITIS [None]
  - PAIN IN EXTREMITY [None]
